FAERS Safety Report 10278973 (Version 2)
Quarter: 2014Q3

REPORT INFORMATION
  Report Type: Report from Study
  Country: MX (occurrence: MX)
  Receive Date: 20140706
  Receipt Date: 20140706
  Transmission Date: 20150326
  Serious: Yes (Other)
  Sender: FDA-Public Use
  Company Number: PHHY2013MX078858

PATIENT
  Age: 70 Year
  Sex: Female

DRUGS (6)
  1. ACLASTA [Suspect]
     Active Substance: ZOLEDRONIC ACID
     Dosage: 1 DF, ANNUALLY
     Route: 042
     Dates: start: 201107
  2. MICARDIS [Concomitant]
     Active Substance: TELMISARTAN
     Indication: TACHYCARDIA
     Dosage: 1 DF, DAILY
     Dates: start: 2011
  3. CRESTOR [Concomitant]
     Active Substance: ROSUVASTATIN CALCIUM
     Dosage: 1 DF, DAILY
     Dates: start: 2013
  4. ACLASTA [Suspect]
     Active Substance: ZOLEDRONIC ACID
     Indication: OSTEOPOROSIS
     Dosage: 1 DF, ANNUALLY
     Route: 042
     Dates: start: 2010
  5. MICARDIS [Concomitant]
     Active Substance: TELMISARTAN
     Indication: BLOOD PRESSURE INCREASED
     Dosage: 40 MG, DAILY
  6. ACLASTA [Suspect]
     Active Substance: ZOLEDRONIC ACID
     Dosage: 1 DF, ANNUALLY
     Route: 042
     Dates: start: 2013

REACTIONS (12)
  - Chondropathy [Not Recovered/Not Resolved]
  - Fall [Not Recovered/Not Resolved]
  - Feeling abnormal [Recovered/Resolved]
  - Gastrointestinal disorder [Recovered/Resolved]
  - Dizziness [Recovered/Resolved]
  - Tooth infection [Recovered/Resolved]
  - Drug ineffective [Not Recovered/Not Resolved]
  - Tooth loss [Unknown]
  - Vein disorder [Not Recovered/Not Resolved]
  - Pharyngitis [Recovered/Resolved]
  - Blood cholesterol abnormal [Unknown]
  - Blood pressure fluctuation [Recovered/Resolved]

NARRATIVE: CASE EVENT DATE: 2013
